FAERS Safety Report 6474043-0 (Version None)
Quarter: 2009Q4

REPORT INFORMATION
  Report Type: 
  Country: None (occurrence: None)
  Receive Date: 20091204
  Receipt Date: 20081224
  Transmission Date: 20100525
  Serious: No
  Sender: FDA-Public Use
  Company Number: US-AMGEN-KDL325669

PATIENT
  Sex: Female

DRUGS (1)
  1. ENBREL [Suspect]
     Indication: RHEUMATOID ARTHRITIS

REACTIONS (5)
  - DIZZINESS [None]
  - GASTROENTERITIS VIRAL [None]
  - INFLUENZA [None]
  - MALAISE [None]
  - RHEUMATOID ARTHRITIS [None]
